FAERS Safety Report 16253011 (Version 3)
Quarter: 2019Q3

REPORT INFORMATION
  Report Type: Spontaneous
  Country: US (occurrence: US)
  Receive Date: 20190429
  Receipt Date: 20190912
  Transmission Date: 20191004
  Serious: Yes (Hospitalization, Other)
  Sender: FDA-Public Use
  Company Number: US-LEXICON PHARMACEUTICALS, INC-19-1606-00482

PATIENT
  Age: 65 Year
  Sex: Male

DRUGS (9)
  1. TELOTRISTAT ETHYL [Suspect]
     Active Substance: TELOTRISTAT ETHYL
     Indication: CARCINOID SYNDROME
     Route: 048
     Dates: start: 20181117
  2. PROTONIX [Concomitant]
     Active Substance: PANTOPRAZOLE SODIUM
  3. ATORVASTATIN [Concomitant]
     Active Substance: ATORVASTATIN
  4. METOPROLOL. [Concomitant]
     Active Substance: METOPROLOL
  5. LOMOTIL [Concomitant]
     Active Substance: ATROPINE SULFATE\DIPHENOXYLATE HYDROCHLORIDE
  6. LOSARTAN. [Concomitant]
     Active Substance: LOSARTAN
  7. IMODIUM [Concomitant]
     Active Substance: LOPERAMIDE HYDROCHLORIDE
     Indication: DIARRHOEA
  8. AFINITOR [Suspect]
     Active Substance: EVEROLIMUS
     Dates: start: 20181125, end: 201904
  9. SPIRONOLACTONE. [Concomitant]
     Active Substance: SPIRONOLACTONE

REACTIONS (14)
  - Hypotension [Unknown]
  - Gastrointestinal haemorrhage [Unknown]
  - Fatigue [Unknown]
  - Anaemia [Unknown]
  - Peritonitis bacterial [Unknown]
  - Muscular weakness [None]
  - Laboratory test abnormal [Unknown]
  - Adenoma benign [Unknown]
  - Pyrexia [Unknown]
  - Duodenal polyp [Unknown]
  - Ascites [Unknown]
  - White blood cell count increased [Unknown]
  - Abdominal distension [Unknown]
  - Abdominal pain [Unknown]

NARRATIVE: CASE EVENT DATE: 201904
